FAERS Safety Report 8859819 (Version 1)
Quarter: 2012Q4

REPORT INFORMATION
  Report Type: 
  Country: US (occurrence: US)
  Receive Date: 20121025
  Receipt Date: 20121025
  Transmission Date: 20130627
  Serious: No
  Sender: FDA-Public Use
  Company Number: US-ABBOTT-11P-163-0872582-00

PATIENT
  Age: 20 Year
  Sex: Female
  Weight: 72.64 kg

DRUGS (3)
  1. LUPRON DEPOT 3.75 MG [Suspect]
     Indication: ENDOMETRIOSIS
     Dates: start: 201107
  2. NORETHINDRONE [Concomitant]
     Indication: HORMONE THERAPY
     Dosage: 2.5 mg daily, 1/2 of 5 mg tablet
     Dates: start: 201107, end: 201110
  3. NORETHINDRONE [Concomitant]
     Dates: start: 201110

REACTIONS (1)
  - Hot flush [Recovered/Resolved]
